FAERS Safety Report 4705963-2 (Version None)
Quarter: 2005Q2

REPORT INFORMATION
  Report Type: 
  Country: None (occurrence: None)
  Receive Date: 20050628
  Receipt Date: 20050211
  Transmission Date: 20051028
  Serious: Yes (Hospitalization)
  Sender: FDA-Public Use
  Company Number: VISP-PR-0502S-0064

PATIENT
  Age: 62 Year
  Sex: Female
  Weight: 68 kg

DRUGS (7)
  1. VISIPAQUE [Suspect]
     Indication: CHEST PAIN
     Dosage: 40 ML, SINGLE DOSE, I.A.
     Route: 013
     Dates: start: 20050207, end: 20050207
  2. SALBUTAMOL (ALBUTEROL) [Concomitant]
  3. PRILOSEC [Concomitant]
  4. NIFEDIPINE [Concomitant]
  5. FOSAMAX [Concomitant]
  6. NABUMETONE [Concomitant]
  7. CALCIUM SUPPLEMENT [Concomitant]

REACTIONS (1)
  - ANAPHYLACTOID REACTION [None]
